FAERS Safety Report 8109090-6 (Version None)
Quarter: 2012Q1

REPORT INFORMATION
  Report Type: 
  Country: None (occurrence: None)
  Receive Date: 20120202
  Receipt Date: 20120104
  Transmission Date: 20120608
  Serious: No
  Sender: FDA-Public Use
  Company Number: US-AMGEN-USASP2011032161

PATIENT
  Age: 29 Year
  Sex: Female

DRUGS (2)
  1. ENBREL [Suspect]
     Indication: RHEUMATOID ARTHRITIS
     Dosage: 50 MG, QWK
     Route: 058
     Dates: start: 20110106, end: 20110601
  2. PRENATAL                           /00231801/ [Concomitant]
     Dosage: UNK UNK, QD
     Route: 048

REACTIONS (2)
  - CARPAL TUNNEL SYNDROME [None]
  - RHEUMATOID ARTHRITIS [None]
